FAERS Safety Report 5380742-4 (Version None)
Quarter: 2007Q3

REPORT INFORMATION
  Report Type: 
  Country: None (occurrence: None)
  Receive Date: 20070706
  Receipt Date: 20070604
  Transmission Date: 20080115
  Serious: Yes (Other)
  Sender: FDA-Public Use
  Company Number: GB-MERCK-0706GBR00018

PATIENT
  Age: 60 Year
  Sex: Female

DRUGS (5)
  1. TRUSOPT [Suspect]
     Indication: INTRAOCULAR PRESSURE INCREASED
     Route: 047
     Dates: start: 20030101
  2. TRUSOPT [Suspect]
     Route: 047
  3. TIMOPTIC [Suspect]
     Indication: INTRAOCULAR PRESSURE INCREASED
     Route: 047
     Dates: start: 20030101
  4. TIMOPTIC [Suspect]
     Route: 047
  5. LATANOPROST [Concomitant]
     Indication: CHOROIDAL DETACHMENT
     Route: 047

REACTIONS (4)
  - CHOROIDAL DETACHMENT [None]
  - CONJUNCTIVAL BLEB [None]
  - HYPOTONY OF EYE [None]
  - VISUAL ACUITY REDUCED [None]
